FAERS Safety Report 6726917-0 (Version None)
Quarter: 2010Q2

REPORT INFORMATION
  Report Type: 
  Country: None (occurrence: None)
  Receive Date: 20100517
  Receipt Date: 20100505
  Transmission Date: 20101027
  Serious: No
  Sender: FDA-Public Use
  Company Number: US-BIOGENIDEC-2010BI015368

PATIENT
  Age: 52 Year
  Sex: Female

DRUGS (1)
  1. TYSABRI [Suspect]
     Indication: MULTIPLE SCLEROSIS
     Route: 042
     Dates: start: 20061019

REACTIONS (6)
  - FALL [None]
  - MUSCLE SPASTICITY [None]
  - MUSCULAR WEAKNESS [None]
  - NAUSEA [None]
  - TREMOR [None]
  - VOMITING [None]
